FAERS Safety Report 24777496 (Version 3)
Quarter: 2025Q1

REPORT INFORMATION
  Report Type: Spontaneous
  Country: US (occurrence: US)
  Receive Date: 20241226
  Receipt Date: 20250123
  Transmission Date: 20250409
  Serious: Yes (Other)
  Sender: INCYTE
  Company Number: US-INCYTE CORPORATION-2024IN013506

PATIENT

DRUGS (2)
  1. JAKAFI [Suspect]
     Active Substance: RUXOLITINIB
     Indication: Polycythaemia vera
     Dosage: 10 MILLIGRAM, BID
     Route: 048
     Dates: start: 20241201
  2. JAKAFI [Suspect]
     Active Substance: RUXOLITINIB
     Dosage: 10 MILLIGRAM, BID
     Route: 048
     Dates: start: 20241201

REACTIONS (15)
  - Hernia [Unknown]
  - Arthropathy [Unknown]
  - Low density lipoprotein increased [Unknown]
  - High density lipoprotein increased [Unknown]
  - Blood iron increased [Unknown]
  - Red cell distribution width increased [Unknown]
  - Fatigue [Unknown]
  - Depressed mood [Unknown]
  - Gastrointestinal pain [Unknown]
  - Red blood cell count decreased [Unknown]
  - Haematocrit decreased [Unknown]
  - Dizziness [Unknown]
  - Contusion [Unknown]
  - Diarrhoea [Unknown]
  - Weight increased [Unknown]
